FAERS Safety Report 19764125 (Version 2)
Quarter: 2021Q3

REPORT INFORMATION
  Report Type: Spontaneous
  Country: HU (occurrence: HU)
  Receive Date: 20210830
  Receipt Date: 20210915
  Transmission Date: 20211014
  Serious: Yes (Life-Threatening, Other)
  Sender: FDA-Public Use
  Company Number: HU-MYLANLABS-2021M1056009

PATIENT
  Age: 44 Year
  Sex: Male
  Weight: 140 kg

DRUGS (6)
  1. GLICLAZIDE [Suspect]
     Active Substance: GLICLAZIDE
     Indication: GLYCOSYLATED HAEMOGLOBIN
     Dosage: UNK
     Route: 065
     Dates: start: 20201212
  2. ATORVASTATIN [Suspect]
     Active Substance: ATORVASTATIN
     Indication: DYSLIPIDAEMIA
     Dosage: 20 MILLIGRAM
     Route: 065
     Dates: start: 201606
  3. HYDROXYUREA. [Concomitant]
     Active Substance: HYDROXYUREA
     Indication: CYTOREDUCTIVE SURGERY
     Dosage: UNK
     Route: 065
  4. METFORMIN [Suspect]
     Active Substance: METFORMIN HYDROCHLORIDE
     Indication: DIABETES MELLITUS
     Dosage: 2000 MILLIGRAM, QD (1000 MG, BID)
     Route: 065
     Dates: start: 201811
  5. TASIGNA [Suspect]
     Active Substance: NILOTINIB
     Indication: CHRONIC MYELOID LEUKAEMIA
     Dosage: 400 MILLIGRAM, QD
     Route: 065
     Dates: start: 20201212, end: 20210302
  6. TASIGNA [Suspect]
     Active Substance: NILOTINIB
     Dosage: 600 MILLIGRAM, QD (300 MG, BID)
     Route: 065
     Dates: start: 20150306

REACTIONS (11)
  - Urosepsis [Unknown]
  - Diabetes mellitus [Unknown]
  - Dyslipidaemia [Recovered/Resolved]
  - Platelet count decreased [Unknown]
  - Depression [Unknown]
  - Nephrolithiasis [Unknown]
  - Glycosylated haemoglobin increased [Unknown]
  - Hyperglycaemia [Unknown]
  - Weight increased [Unknown]
  - Body mass index increased [Unknown]
  - Obstruction [Unknown]

NARRATIVE: CASE EVENT DATE: 201606
